FAERS Safety Report 15260474 (Version 1)
Quarter: 2018Q3

REPORT INFORMATION
  Report Type: Spontaneous
  Country: NL (occurrence: NL)
  Receive Date: 20180809
  Receipt Date: 20180809
  Transmission Date: 20181010
  Serious: Yes (Hospitalization)
  Sender: FDA-Public Use
  Company Number: PHHY2018NL063741

PATIENT
  Age: 68 Year
  Sex: Female

DRUGS (5)
  1. METOPROLOL. [Concomitant]
     Active Substance: METOPROLOL
     Indication: PRODUCT USED FOR UNKNOWN INDICATION
     Dosage: UNK
     Route: 065
  2. METFORMIN [Suspect]
     Active Substance: METFORMIN HYDROCHLORIDE
     Indication: TYPE 2 DIABETES MELLITUS
     Dosage: UNK
     Route: 065
  3. CAPTOPRIL. [Concomitant]
     Active Substance: CAPTOPRIL
     Indication: PRODUCT USED FOR UNKNOWN INDICATION
     Dosage: UNK
     Route: 065
  4. CIPROFLOXACIN. [Concomitant]
     Active Substance: CIPROFLOXACIN
     Indication: URINARY TRACT INFECTION
     Dosage: UNK
     Route: 065
  5. CARBASALATE CALCIUM [Concomitant]
     Active Substance: CARBASPIRIN
     Indication: PRODUCT USED FOR UNKNOWN INDICATION
     Dosage: UNK
     Route: 065

REACTIONS (19)
  - Vomiting [Unknown]
  - Renal failure [Unknown]
  - Coagulopathy [Unknown]
  - Pancreatic enzymes abnormal [Unknown]
  - Loss of consciousness [Unknown]
  - Malaise [Unknown]
  - Nausea [Unknown]
  - Hypothermia [Unknown]
  - Shock [Unknown]
  - Micturition frequency decreased [Unknown]
  - Hyperkalaemia [Unknown]
  - Fatigue [Unknown]
  - Multiple organ dysfunction syndrome [Unknown]
  - Bradycardia [Unknown]
  - Anuria [Unknown]
  - Hepatic enzyme abnormal [Unknown]
  - Dizziness [Unknown]
  - Abdominal pain [Unknown]
  - Lactic acidosis [Unknown]
